FAERS Safety Report 19954083 (Version 8)
Quarter: 2022Q3

REPORT INFORMATION
  Report Type: Report from Study
  Country: US (occurrence: None)
  Receive Date: 20211014
  Receipt Date: 20220928
  Transmission Date: 20221027
  Serious: Yes (Other)
  Sender: FDA-Public Use
  Company Number: US-ROCHE-2802973

PATIENT
  Age: 59 Year
  Sex: Male
  Weight: 98 kg

DRUGS (23)
  1. RANIBIZUMAB [Suspect]
     Active Substance: RANIBIZUMAB
     Indication: Diabetic retinal oedema
     Dosage: EVERY 24 WEEKS?DOSE OF STUDY DRUG FIRST ADMINISTERED: 10MG/ML,?START DATE OF MOST RECENT DOSE 100MG/
     Route: 050
     Dates: start: 20200107
  2. RANIBIZUMAB [Suspect]
     Active Substance: RANIBIZUMAB
  3. RANIBIZUMAB [Suspect]
     Active Substance: RANIBIZUMAB
  4. RANIBIZUMAB [Suspect]
     Active Substance: RANIBIZUMAB
  5. RANIBIZUMAB [Suspect]
     Active Substance: RANIBIZUMAB
  6. METFORMIN [Concomitant]
     Active Substance: METFORMIN HYDROCHLORIDE
     Indication: Type 2 diabetes mellitus
     Route: 048
     Dates: start: 1972
  7. HYDROCODONE [Concomitant]
     Active Substance: HYDROCODONE
     Indication: Pain
     Dates: start: 201404
  8. RANOLAZINE [Concomitant]
     Active Substance: RANOLAZINE
     Dates: start: 20191203
  9. ULTRA CO Q10 [Concomitant]
     Dates: start: 201906
  10. OMEPRAZOLE [Concomitant]
     Active Substance: OMEPRAZOLE
     Indication: Gastrooesophageal reflux disease
     Dates: start: 1999
  11. ATORVASTATIN [Concomitant]
     Active Substance: ATORVASTATIN
     Indication: Hypercholesterolaemia
     Dates: start: 201610
  12. HERBALS\TURMERIC [Concomitant]
     Active Substance: HERBALS\TURMERIC
     Dates: start: 201906
  13. LISINOPRIL [Concomitant]
     Active Substance: LISINOPRIL
     Indication: Hypertension
     Dates: start: 201610
  14. ALLEGRA [Concomitant]
     Active Substance: FEXOFENADINE HYDROCHLORIDE
     Indication: Seasonal allergy
     Dates: start: 201904
  15. EZETIMIBE [Concomitant]
     Active Substance: EZETIMIBE
     Indication: Hypertension
     Dates: start: 201904
  16. EZETIMIBE [Concomitant]
     Active Substance: EZETIMIBE
     Dates: start: 201903
  17. METOPROLOL TARTRATE [Concomitant]
     Active Substance: METOPROLOL TARTRATE
     Indication: Hypertension
     Dates: start: 201610
  18. CINNAMON [Concomitant]
     Active Substance: CINNAMON
     Dates: start: 201606
  19. RANIBIZUMAB [Concomitant]
     Active Substance: RANIBIZUMAB
     Dosage: FELLOW EYE TREATMENT; DRUG DOSE FIRST ADMINISTERED IS 6 MG/ML, DOSE LAST STUDY DRUG ADMIN PRIOR AE A
     Route: 050
     Dates: start: 20200331
  20. LOTEMAX [Concomitant]
     Active Substance: LOTEPREDNOL ETABONATE
     Dates: start: 20210329, end: 20210406
  21. LOTEMAX [Concomitant]
     Active Substance: LOTEPREDNOL ETABONATE
     Route: 047
     Dates: start: 20210330, end: 20210406
  22. BESIVANCE [Concomitant]
     Active Substance: BESIFLOXACIN
     Indication: Central venous catheterisation
     Route: 047
     Dates: start: 20210328, end: 20210406
  23. BESIVANCE [Concomitant]
     Active Substance: BESIFLOXACIN
     Route: 047
     Dates: start: 20210330, end: 20210409

REACTIONS (2)
  - Hypotony of eye [Recovered/Resolved]
  - Wound secretion [Recovered/Resolved with Sequelae]

NARRATIVE: CASE EVENT DATE: 20210330
